FAERS Safety Report 17917085 (Version 1)
Quarter: 2020Q2

REPORT INFORMATION
  Report Type: Spontaneous
  Country: US (occurrence: US)
  Receive Date: 20200619
  Receipt Date: 20200619
  Transmission Date: 20200714
  Serious: Yes (Other)
  Sender: FDA-Public Use
  Company Number: US-GILEAD-2020-0473734

PATIENT
  Age: 62 Year
  Sex: Male
  Weight: 135.9 kg

DRUGS (21)
  1. SODIUM PHOSPHATE [Concomitant]
     Active Substance: SODIUM PHOSPHATE
  2. MEROPENEM. [Concomitant]
     Active Substance: MEROPENEM
  3. EPOPROSTENOL [EPOPROSTENOL SODIUM] [Concomitant]
  4. INSULIN LISPRO [Concomitant]
     Active Substance: INSULIN LISPRO
  5. PROPOFOL. [Concomitant]
     Active Substance: PROPOFOL
  6. LIPASE [Concomitant]
     Active Substance: LIPASE
  7. LINEZOLID. [Concomitant]
     Active Substance: LINEZOLID
  8. HEPARIN [Concomitant]
     Active Substance: HEPARIN SODIUM
  9. INSULIN REGULAR BEEF [Concomitant]
  10. MIDAZOLAM. [Concomitant]
     Active Substance: MIDAZOLAM
  11. LISINOPRIL. [Concomitant]
     Active Substance: LISINOPRIL
  12. ASPIRIN (E.C.) [Concomitant]
     Active Substance: ASPIRIN
  13. MAGNESIUM SULFATE;POTASSIUM CHLORIDE [Concomitant]
  14. NOREPINEPHRINE. [Concomitant]
     Active Substance: NOREPINEPHRINE
  15. OMPRAZOLE [Concomitant]
     Active Substance: OMEPRAZOLE
  16. ALBUTEROL SULFATE HFA [Concomitant]
     Active Substance: ALBUTEROL SULFATE
  17. REMDESIVIR. [Suspect]
     Active Substance: REMDESIVIR
     Indication: COVID-19
     Dosage: 200 MG, QD
     Route: 042
     Dates: start: 20200606, end: 20200606
  18. REMDESIVIR. [Suspect]
     Active Substance: REMDESIVIR
     Dosage: 100 MG, QD
     Route: 042
     Dates: start: 20200607, end: 20200611
  19. PRISMASOL [Concomitant]
     Active Substance: DEXTROSE\LACTIC ACID\MAGNESIUM CL\POTASSIUM CL\SODIUM BICARBONATE\SODIUM CL
  20. ROCURONIUM [Concomitant]
     Active Substance: ROCURONIUM BROMIDE
  21. HYDROMORPHONE [Concomitant]
     Active Substance: HYDROMORPHONE

REACTIONS (2)
  - Bilirubin conjugated increased [Recovering/Resolving]
  - Acute kidney injury [Recovering/Resolving]

NARRATIVE: CASE EVENT DATE: 20200612
